FAERS Safety Report 24418715 (Version 1)
Quarter: 2024Q4

REPORT INFORMATION
  Report Type: Spontaneous
  Country: VN (occurrence: VN)
  Receive Date: 20241009
  Receipt Date: 20241009
  Transmission Date: 20250115
  Serious: Yes (Death, Hospitalization)
  Sender: SANDOZ
  Company Number: VN-002147023-NVSC2024VN196916

PATIENT

DRUGS (2)
  1. MYCOPHENOLATE MOFETIL [Suspect]
     Active Substance: MYCOPHENOLATE MOFETIL
     Indication: Lupus nephritis
     Dosage: 1.5-2 G/DAY
     Route: 065
  2. METHYLPREDNISOLONE [Suspect]
     Active Substance: METHYLPREDNISOLONE
     Indication: Lupus nephritis
     Dosage: 500 MG, QD
     Route: 065

REACTIONS (4)
  - Nephrotic syndrome [Fatal]
  - Acute kidney injury [Fatal]
  - Infection [Fatal]
  - Product use in unapproved indication [Unknown]
